FAERS Safety Report 6542650-2 (Version None)
Quarter: 2010Q1

REPORT INFORMATION
  Report Type: 
  Country: None (occurrence: None)
  Receive Date: 20100119
  Receipt Date: 20100113
  Transmission Date: 20100710
  Serious: Yes (Hospitalization)
  Sender: FDA-Public Use
  Company Number: US-GILEAD-2010-0026284

PATIENT
  Sex: Female
  Weight: 56.296 kg

DRUGS (14)
  1. LETAIRIS [Suspect]
     Indication: PULMONARY ARTERIAL HYPERTENSION
     Route: 048
     Dates: start: 20091117
  2. REVATIO [Concomitant]
  3. TRENTAL [Concomitant]
  4. LASIX [Concomitant]
  5. AMBIEN [Concomitant]
  6. TESSALON [Concomitant]
  7. PHENERGAN HCL [Concomitant]
  8. OXYGEN [Concomitant]
  9. ZYRTEC [Concomitant]
  10. NASONEX [Concomitant]
  11. LORTAB [Concomitant]
  12. PREVACID [Concomitant]
  13. MAGNESIUM [Concomitant]
  14. FOLIC ACID [Concomitant]

REACTIONS (1)
  - SICKLE CELL ANAEMIA WITH CRISIS [None]
